FAERS Safety Report 4719385-1 (Version None)
Quarter: 2005Q3

REPORT INFORMATION
  Report Type: 
  Country: None (occurrence: None)
  Receive Date: 20050719
  Receipt Date: 20050719
  Transmission Date: 20060218
  Serious: Yes (Hospitalization)
  Sender: FDA-Public Use
  Company Number: None

PATIENT
  Sex: Female

DRUGS (13)
  1. GATIFLOXACIN [Suspect]
     Indication: URINARY TRACT INFECTION
     Dosage: 200 MG DAILY ORAL
     Route: 048
     Dates: start: 20050418, end: 20050501
  2. ALBUTEROL SULFATE AND IPRATROPIUM BROMIDE [Concomitant]
  3. CITALOPRAM [Concomitant]
  4. ASPIRIN [Concomitant]
  5. FLUNISOLIDE [Concomitant]
  6. FUROSEMIDE [Concomitant]
  7. GABAPENTIN [Concomitant]
  8. GUAFENESIN SA [Concomitant]
  9. HEPARIN [Concomitant]
  10. LOVASTATIN [Concomitant]
  11. METOPROLOL [Concomitant]
  12. OMEPRAZOLE [Concomitant]
  13. WARFARIN [Concomitant]

REACTIONS (1)
  - CLOSTRIDIUM COLITIS [None]
